FAERS Safety Report 9252051 (Version 3)
Quarter: 2013Q3

REPORT INFORMATION
  Report Type: Report from Study
  Country: GB (occurrence: GB)
  Receive Date: 20130424
  Receipt Date: 20130808
  Transmission Date: 20140515
  Serious: Yes (Other)
  Sender: FDA-Public Use
  Company Number: GB-JNJFOC-20130410260

PATIENT
  Age: 48 Year
  Sex: Female
  Weight: 90.8 kg

DRUGS (21)
  1. STELARA [Suspect]
     Indication: PSORIATIC ARTHROPATHY
     Route: 058
     Dates: start: 20110411
  2. SIMVASTATIN [Concomitant]
     Indication: HYPERCHOLESTEROLAEMIA
     Route: 048
  3. LOSARTAN [Concomitant]
     Indication: HYPERTENSION
     Route: 048
  4. FERROUS FUMERATE [Concomitant]
     Indication: ANAEMIA
     Route: 048
  5. DIAZEPAM [Concomitant]
     Indication: ANXIETY
     Route: 048
  6. ZOPICLONE [Concomitant]
     Indication: INSOMNIA
     Route: 048
  7. GABAPENTIN [Concomitant]
     Indication: ANALGESIC THERAPY
  8. GABAPENTIN [Concomitant]
     Indication: ANALGESIC THERAPY
  9. METHADONE [Concomitant]
     Indication: PAIN
     Route: 048
  10. TERBUTALINE [Concomitant]
     Indication: ASTHMA
  11. QUININE [Concomitant]
     Indication: MUSCLE SPASMS
     Route: 048
  12. FOLIC ACID [Concomitant]
     Indication: PSORIASIS
     Route: 048
  13. DICLOFENAC [Concomitant]
     Indication: PAIN
     Route: 048
  14. FUROSEMIDE [Concomitant]
     Indication: HYPERTENSION
     Dates: start: 2001
  15. HYDROXYCOBALAMIN [Concomitant]
     Indication: VITAMIN B12 DEFICIENCY
     Route: 030
  16. CREON [Concomitant]
  17. DULOXETINE [Concomitant]
  18. CAPSAICIN [Concomitant]
     Indication: ANALGESIC THERAPY
     Route: 061
  19. LANSOPRAZOLE [Concomitant]
     Indication: GASTROOESOPHAGEAL REFLUX DISEASE
  20. SOLVEZINC [Concomitant]
  21. SERETIDE [Concomitant]
     Indication: ASTHMA

REACTIONS (1)
  - VIIth nerve paralysis [Recovering/Resolving]
